FAERS Safety Report 9275377 (Version 2)
Quarter: 2013Q3

REPORT INFORMATION
  Report Type: Spontaneous
  Country: US (occurrence: None)
  Receive Date: 20130221
  Receipt Date: 20130906
  Transmission Date: 20140515
  Serious: Yes (Life-Threatening)
  Sender: FDA-Public Use
  Company Number: 54973 AE # 1247

PATIENT
  Age: 6 Month
  Sex: Female

DRUGS (1)
  1. HYLAND^S BABY TEETHING TABLETS [Suspect]
     Indication: TEETHING
     Dosage: 2 TABS TID X 4 DAYS

REACTIONS (7)
  - Irritability [None]
  - Feeling abnormal [None]
  - Eye movement disorder [None]
  - Asthenia [None]
  - Vision blurred [None]
  - Apnoea [None]
  - Hypotonia [None]
